FAERS Safety Report 6775906-9 (Version None)
Quarter: 2010Q2

REPORT INFORMATION
  Report Type: 
  Country: None (occurrence: None)
  Receive Date: 20100617
  Receipt Date: 20100616
  Transmission Date: 20101027
  Serious: Yes (Hospitalization, Disabling)
  Sender: FDA-Public Use
  Company Number: JP-ABBOTT-10P-087-0650236-00

PATIENT
  Sex: Female

DRUGS (6)
  1. KLARICID TAB [Suspect]
     Indication: NASOPHARYNGITIS
     Route: 048
     Dates: start: 20100601, end: 20100603
  2. ZITHROMAX [Suspect]
     Indication: NASOPHARYNGITIS
     Route: 048
     Dates: start: 20100603
  3. ASVERIN SYR [Concomitant]
     Indication: NASOPHARYNGITIS
     Route: 048
     Dates: start: 20100601, end: 20100603
  4. MUCOTRON SYR [Concomitant]
     Indication: NASOPHARYNGITIS
     Route: 048
     Dates: start: 20100601, end: 20100603
  5. ASTOMIN TAB [Concomitant]
     Indication: NASOPHARYNGITIS
     Route: 048
     Dates: start: 20100601, end: 20100603
  6. SOLANTAL TAB [Concomitant]
     Indication: NASOPHARYNGITIS
     Route: 048
     Dates: start: 20100601, end: 20100603

REACTIONS (4)
  - BLISTER [None]
  - DRUG ERUPTION [None]
  - DRUG INEFFECTIVE [None]
  - ENANTHEMA [None]
